FAERS Safety Report 25187096 (Version 1)
Quarter: 2025Q2

REPORT INFORMATION
  Report Type: Spontaneous
  Country: US (occurrence: US)
  Receive Date: 20250411
  Receipt Date: 20250411
  Transmission Date: 20250716
  Serious: Yes (Hospitalization)
  Sender: NOVITIUM PHARMA
  Company Number: US-NOVITIUMPHARMA-2025USNVP00856

PATIENT
  Age: 4 Year
  Sex: Male

DRUGS (11)
  1. PREDNISONE [Suspect]
     Active Substance: PREDNISONE
     Indication: Histiocytic sarcoma
  2. PREDNISONE [Suspect]
     Active Substance: PREDNISONE
  3. PREDNISONE [Suspect]
     Active Substance: PREDNISONE
  4. DEXAMETHASONE [Concomitant]
     Active Substance: DEXAMETHASONE
     Indication: B-cell type acute leukaemia
  5. VINCRISTINE [Concomitant]
     Active Substance: VINCRISTINE
     Indication: B-cell type acute leukaemia
  6. PEGASPARGASE [Concomitant]
     Active Substance: PEGASPARGASE
     Indication: B-cell type acute leukaemia
  7. METHOTREXATE [Concomitant]
     Active Substance: METHOTREXATE
     Indication: B-cell type acute leukaemia
  8. CLOFARABINE [Concomitant]
     Active Substance: CLOFARABINE
     Indication: Histiocytic sarcoma
  9. NIVOLUMAB [Concomitant]
     Active Substance: NIVOLUMAB
     Indication: Histiocytic sarcoma
  10. NIVOLUMAB [Concomitant]
     Active Substance: NIVOLUMAB
     Route: 042
  11. IPILIMUMAB [Concomitant]
     Active Substance: IPILIMUMAB
     Indication: Histiocytic sarcoma
     Route: 042

REACTIONS (1)
  - Drug intolerance [Unknown]
